FAERS Safety Report 25134886 (Version 1)
Quarter: 2025Q1

REPORT INFORMATION
  Report Type: Spontaneous
  Country: US (occurrence: US)
  Receive Date: 20250328
  Receipt Date: 20250328
  Transmission Date: 20250409
  Serious: No
  Sender: SANOFI AVENTIS
  Company Number: US-SA-2025SA089684

PATIENT
  Sex: Female
  Weight: 60.771 kg

DRUGS (34)
  1. DUPIXENT [Suspect]
     Active Substance: DUPILUMAB
     Indication: Dermatitis atopic
     Dosage: 300 MG, QOW
     Route: 058
     Dates: start: 20250219
  2. HUMIRA [Concomitant]
     Active Substance: ADALIMUMAB
  3. ASPIRIN [Concomitant]
     Active Substance: ASPIRIN
  4. LIOTHYRONINE SODIUM [Concomitant]
     Active Substance: LIOTHYRONINE SODIUM
  5. DOMEBORO [Concomitant]
     Active Substance: ALUMINUM SULFATE TETRADECAHYDRATE\CALCIUM ACETATE MONOHYDRATE
  6. EPIPEN [Concomitant]
     Active Substance: EPINEPHRINE
  7. KETOCONAZOLE [Concomitant]
     Active Substance: KETOCONAZOLE
  8. MAGNESIUM OXIDE [Concomitant]
     Active Substance: MAGNESIUM OXIDE
  9. CREON [Concomitant]
     Active Substance: PANCRELIPASE AMYLASE\PANCRELIPASE LIPASE\PANCRELIPASE PROTEASE
  10. DICLOFENAC [Concomitant]
     Active Substance: DICLOFENAC
  11. CENTURY [Concomitant]
  12. TROSPIUM CHLORIDE [Concomitant]
     Active Substance: TROSPIUM CHLORIDE
  13. DIHYDROERGOTAMINE MESYLATE [Concomitant]
     Active Substance: DIHYDROERGOTAMINE MESYLATE
  14. MONTELUKAST SODIUM [Concomitant]
     Active Substance: MONTELUKAST SODIUM
  15. ALBUTEROL SULFATE [Concomitant]
     Active Substance: ALBUTEROL SULFATE
  16. FEXOFENADINE [FEXOFENADINE HYDROCHLORIDE] [Concomitant]
  17. AZELASTINE HYDROCHLORIDE [Concomitant]
     Active Substance: AZELASTINE HYDROCHLORIDE
  18. ERYTHROMYCIN [Concomitant]
     Active Substance: ERYTHROMYCIN
  19. RIZATRIPTAN [RIZATRIPTAN BENZOATE] [Concomitant]
  20. BACLOFEN [Concomitant]
     Active Substance: BACLOFEN
  21. VITAMIN D2 [Concomitant]
     Active Substance: ERGOCALCIFEROL
  22. CYANOCOBALAMIN [Concomitant]
     Active Substance: CYANOCOBALAMIN
  23. HUMALOG [Concomitant]
     Active Substance: INSULIN LISPRO
  24. ESTRADIOL [Concomitant]
     Active Substance: ESTRADIOL
  25. BUPROPION HYDROCHLORIDE [Concomitant]
     Active Substance: BUPROPION HYDROCHLORIDE
  26. DEXLANSOPRAZOLE [Concomitant]
     Active Substance: DEXLANSOPRAZOLE
  27. ONDANSETRON HYDROCHLORIDE [Concomitant]
     Active Substance: ONDANSETRON HYDROCHLORIDE
  28. MOUNJARO [Concomitant]
     Active Substance: TIRZEPATIDE
  29. GRANISETRON HYDROCHLORIDE [Concomitant]
     Active Substance: GRANISETRON HYDROCHLORIDE
  30. AIMOVIG [Concomitant]
     Active Substance: ERENUMAB-AOOE
  31. LORAZEPAM [Concomitant]
     Active Substance: LORAZEPAM
  32. COENZYME Q10 [Concomitant]
     Active Substance: DIETARY SUPPLEMENT\UBIDECARENONE
  33. NYSTATIN AND TRIAMCINOLONE [Concomitant]
     Active Substance: NYSTATIN\TRIAMCINOLONE ACETONIDE
  34. CLOBETASOL [Concomitant]
     Active Substance: CLOBETASOL

REACTIONS (1)
  - Injection site pain [Unknown]
